FAERS Safety Report 23145598 (Version 1)
Quarter: 2023Q4

REPORT INFORMATION
  Report Type: Report from Study
  Country: KR (occurrence: KR)
  Receive Date: 20231103
  Receipt Date: 20231103
  Transmission Date: 20240110
  Serious: Yes (Hospitalization)
  Sender: FDA-Public Use
  Company Number: KR-Eisai Medical Research-EC-2022-117870

PATIENT
  Age: 72 Year
  Sex: Female
  Weight: 50.1 kg

DRUGS (12)
  1. LENVATINIB [Suspect]
     Active Substance: LENVATINIB
     Indication: Oesophageal adenocarcinoma
     Dosage: STARTING DOSE AT 8 MG, FLUCTUATED DOSAGE
     Route: 048
     Dates: start: 20211216, end: 20220615
  2. LENVATINIB [Suspect]
     Active Substance: LENVATINIB
     Indication: Adenocarcinoma gastric
     Route: 048
     Dates: start: 20220801, end: 20221004
  3. PEMBROLIZUMAB [Suspect]
     Active Substance: PEMBROLIZUMAB
     Indication: Oesophageal adenocarcinoma
     Route: 042
     Dates: start: 20211216, end: 20220602
  4. PEMBROLIZUMAB [Suspect]
     Active Substance: PEMBROLIZUMAB
     Indication: Adenocarcinoma gastric
     Route: 042
     Dates: start: 20220801, end: 20221026
  5. DESOWEN [Concomitant]
     Active Substance: DESONIDE
     Dates: start: 20210930, end: 20220913
  6. DIOVAN [Concomitant]
     Active Substance: VALSARTAN
     Dates: start: 20211111, end: 20220615
  7. BEAROBAN [Concomitant]
     Dates: start: 20220121, end: 20220913
  8. LOPAINE [Concomitant]
     Dates: start: 20220328, end: 20220615
  9. AUGMENTIN [Concomitant]
     Active Substance: AMOXICILLIN\CLAVULANATE POTASSIUM
     Dates: start: 20220531, end: 20220607
  10. PARASON [Concomitant]
     Dates: start: 20220531, end: 20220615
  11. HEXAMEDIN [Concomitant]
     Dates: start: 20220531, end: 20220615
  12. ACETAMINOPHEN\CODEINE\IBUPROFEN [Concomitant]
     Active Substance: ACETAMINOPHEN\CODEINE\IBUPROFEN
     Dates: start: 20220512, end: 20220610

REACTIONS (1)
  - Nausea [Recovered/Resolved]

NARRATIVE: CASE EVENT DATE: 20220615
